FAERS Safety Report 7929713-1 (Version None)
Quarter: 2011Q4

REPORT INFORMATION
  Report Type: 
  Country: None (occurrence: None)
  Receive Date: 20111116
  Receipt Date: 20111031
  Transmission Date: 20120403
  Serious: Yes (Other)
  Sender: FDA-Public Use
  Company Number: 2011AP002472

PATIENT
  Age: 65 Year
  Sex: Female

DRUGS (4)
  1. PHENYTOIN [Concomitant]
  2. PHENOBARBITAL TAB [Concomitant]
  3. CARBAMAZEPINE [Concomitant]
  4. VALPROIC ACID SYRUP [Suspect]
     Indication: CONVULSION
     Dosage: 1 G; QD

REACTIONS (4)
  - URINARY INCONTINENCE [None]
  - GAIT DISTURBANCE [None]
  - NORMAL PRESSURE HYDROCEPHALUS [None]
  - DEAFNESS [None]
